FAERS Safety Report 5073440-8 (Version None)
Quarter: 2006Q3

REPORT INFORMATION
  Report Type: 
  Country: None (occurrence: None)
  Receive Date: 20060808
  Receipt Date: 20060803
  Transmission Date: 20061208
  Serious: Yes (Life-Threatening, Hospitalization, Other)
  Sender: FDA-Public Use
  Company Number: US-BAYER-200613330GDS

PATIENT
  Age: 52 Year
  Sex: Male

DRUGS (3)
  1. APROTININ [Suspect]
     Indication: MEDIASTINAL HAEMORRHAGE
     Route: 065
  2. DESMOPRESSIN ACETATE [Concomitant]
     Indication: MEDIASTINAL HAEMORRHAGE
  3. EPSILON-AMINOCAPROIC ACID [Concomitant]
     Indication: MEDIASTINAL HAEMORRHAGE

REACTIONS (13)
  - ABDOMINAL DISCOMFORT [None]
  - ABDOMINAL DISTENSION [None]
  - ACUTE RESPIRATORY DISTRESS SYNDROME [None]
  - BLOOD CREATININE INCREASED [None]
  - BLOOD UREA INCREASED [None]
  - COLON GANGRENE [None]
  - GASTROINTESTINAL ISCHAEMIA [None]
  - GASTROINTESTINAL NECROSIS [None]
  - HYPOXIA [None]
  - INTESTINAL INFARCTION [None]
  - LUNG INFILTRATION [None]
  - OLIGURIA [None]
  - RENAL FAILURE [None]
